FAERS Safety Report 10903709 (Version 2)
Quarter: 2015Q1

REPORT INFORMATION
  Report Type: Spontaneous
  Country: CH (occurrence: None)
  Receive Date: 20150304
  Receipt Date: 20150304
  Transmission Date: 20150721
  Serious: Yes (Other)
  Sender: FDA-Public Use
  Company Number: 8013838D

PATIENT
  Age: 70 Year
  Sex: Female
  Weight: 80 kg

DRUGS (2)
  1. EUTHYROX [Suspect]
     Active Substance: LEVOTHYROXINE SODIUM
     Indication: HYPOTHYROIDISM
     Route: 048
     Dates: start: 201405
  2. STREPSILS /00048001/ (FLURBIPROFEN) [Suspect]
     Active Substance: FLURBIPROFEN
     Indication: OROPHARYNGEAL PAIN
     Route: 002
     Dates: start: 20150129, end: 20150129

REACTIONS (1)
  - Palpitations [None]

NARRATIVE: CASE EVENT DATE: 20150129
